FAERS Safety Report 23366423 (Version 2)
Quarter: 2024Q4

REPORT INFORMATION
  Report Type: Report from Study
  Country: US (occurrence: US)
  Receive Date: 20240104
  Receipt Date: 20241008
  Transmission Date: 20250114
  Serious: No
  Sender: TG THERAPEUTICS
  Company Number: US-TG THERAPEUTICS INC.-TGT003162

PATIENT

DRUGS (1)
  1. BRIUMVI [Suspect]
     Active Substance: UBLITUXIMAB-XIIY
     Indication: Multiple sclerosis
     Dosage: UNK
     Route: 042
     Dates: start: 2023, end: 2023

REACTIONS (6)
  - Rhinorrhoea [Unknown]
  - Nasal congestion [Unknown]
  - Blood pressure increased [Unknown]
  - Bronchitis [Unknown]
  - Respiratory tract infection [Unknown]
  - Drug ineffective [Unknown]

NARRATIVE: CASE EVENT DATE: 20230101
